FAERS Safety Report 7213382-2 (Version None)
Quarter: 2011Q1

REPORT INFORMATION
  Report Type: 
  Country: None (occurrence: None)
  Receive Date: 20110106
  Receipt Date: 20101230
  Transmission Date: 20110831
  Serious: Yes (Hospitalization)
  Sender: FDA-Public Use
  Company Number: FR-JNJFOC-20101209156

PATIENT
  Age: 42 Year
  Sex: Male

DRUGS (1)
  1. REMICADE [Suspect]
     Indication: CROHN'S DISEASE
     Dosage: DATE ALSO REPORTED AS 12-AUG-2010
     Route: 042

REACTIONS (2)
  - COLONIC STENOSIS [None]
  - SMALL INTESTINAL OBSTRUCTION [None]
